FAERS Safety Report 11652244 (Version 1)
Quarter: 2015Q4

REPORT INFORMATION
  Report Type: Spontaneous
  Country: US (occurrence: US)
  Receive Date: 20151022
  Receipt Date: 20151022
  Transmission Date: 20160304
  Serious: No
  Sender: FDA-Public Use
  Company Number: US-JNJFOC-20151012749

PATIENT
  Sex: Male
  Weight: 77.11 kg

DRUGS (11)
  1. DURAGESIC [Suspect]
     Active Substance: FENTANYL
     Indication: BONE DISORDER
     Route: 062
     Dates: start: 2013
  2. DURAGESIC [Suspect]
     Active Substance: FENTANYL
     Indication: BONE DISORDER
     Route: 062
     Dates: start: 2011, end: 2013
  3. DURAGESIC [Suspect]
     Active Substance: FENTANYL
     Indication: BONE DISORDER
     Route: 062
  4. ADDERALL [Concomitant]
     Active Substance: AMPHETAMINE ASPARTATE\AMPHETAMINE SULFATE\DEXTROAMPHETAMINE SACCHARATE\DEXTROAMPHETAMINE SULFATE
     Indication: ATTENTION DEFICIT/HYPERACTIVITY DISORDER
     Dosage: AS NEEDED
     Route: 065
  5. KLONOPIN [Concomitant]
     Active Substance: CLONAZEPAM
     Indication: TREMOR
     Route: 065
  6. DURAGESIC [Suspect]
     Active Substance: FENTANYL
     Indication: EXOSTOSIS
     Route: 062
     Dates: start: 2013
  7. OXYCODONE [Concomitant]
     Active Substance: OXYCODONE
     Indication: BREAKTHROUGH PAIN
     Dosage: UPTO 4 TIMES A DAY
     Route: 065
  8. DURAGESIC [Suspect]
     Active Substance: FENTANYL
     Indication: BONE DISORDER
     Route: 062
     Dates: start: 2011, end: 2011
  9. DURAGESIC [Suspect]
     Active Substance: FENTANYL
     Indication: EXOSTOSIS
     Route: 062
     Dates: start: 2011, end: 2011
  10. DURAGESIC [Suspect]
     Active Substance: FENTANYL
     Indication: EXOSTOSIS
     Route: 062
     Dates: start: 2011, end: 2013
  11. DURAGESIC [Suspect]
     Active Substance: FENTANYL
     Indication: EXOSTOSIS
     Route: 062

REACTIONS (3)
  - Product adhesion issue [Unknown]
  - Wrong technique in product usage process [Unknown]
  - Drug ineffective [Unknown]

NARRATIVE: CASE EVENT DATE: 2011
